FAERS Safety Report 6154495-6 (Version None)
Quarter: 2009Q2

REPORT INFORMATION
  Report Type: 
  Country: None (occurrence: None)
  Receive Date: 20090410
  Receipt Date: 20090410
  Transmission Date: 20091009
  Serious: No
  Sender: FDA-Public Use
  Company Number: None

PATIENT
  Age: 57 Year
  Sex: Male
  Weight: 112.2653 kg

DRUGS (6)
  1. ERLOTINIB 100MG BY MOUTH DAILY [Suspect]
     Indication: LARYNGEAL CANCER
     Dosage: 100MG BY MOUTH DAILY
     Route: 048
     Dates: start: 20081027
  2. CISPLATIN [Suspect]
     Indication: LARYNGEAL CANCER
     Dosage: 30MG/M^2 WEEKLY VIA IV
     Route: 042
     Dates: start: 20081231
  3. TOPROL-XL [Concomitant]
  4. ROXICET [Concomitant]
  5. IMODIUM [Concomitant]
  6. MAGIC MOUTHWASH [Concomitant]

REACTIONS (1)
  - LYMPHOCYTE COUNT DECREASED [None]
